FAERS Safety Report 5441445-0 (Version None)
Quarter: 2007Q3

REPORT INFORMATION
  Report Type: 
  Country: None (occurrence: None)
  Receive Date: 20070904
  Receipt Date: 20070824
  Transmission Date: 20080115
  Serious: Yes (Other)
  Sender: FDA-Public Use
  Company Number: US-JNJFOC-20070805868

PATIENT
  Sex: Female
  Weight: 70.31 kg

DRUGS (2)
  1. FENTANYL TRANSDERMAL SYSTEM [Suspect]
     Indication: FIBROMYALGIA
     Route: 062
  2. ROXICODONE [Concomitant]
     Indication: BREAKTHROUGH PAIN
     Dosage: EVERY 4-6 HOURS
     Route: 048

REACTIONS (4)
  - ANXIETY [None]
  - CONCUSSION [None]
  - FALL [None]
  - MUSCLE SPASMS [None]
